FAERS Safety Report 14019123 (Version 2)
Quarter: 2017Q4

REPORT INFORMATION
  Report Type: Spontaneous
  Country: RU (occurrence: RU)
  Receive Date: 20170928
  Receipt Date: 20171113
  Transmission Date: 20180321
  Serious: Yes (Hospitalization)
  Sender: FDA-Public Use
  Company Number: RU-BAYER-2017-168027

PATIENT
  Age: 31 Year
  Sex: Female

DRUGS (2)
  1. AVELOX [Suspect]
     Active Substance: MOXIFLOXACIN HYDROCHLORIDE
     Indication: MYCOPLASMA GENITALIUM INFECTION
     Dosage: 1 DF, QD
     Route: 048
     Dates: start: 201607, end: 20160728
  2. AVELOX [Suspect]
     Active Substance: MOXIFLOXACIN HYDROCHLORIDE
     Indication: MYCOPLASMA GENITALIUM INFECTION
     Dosage: 1 DF, QD
     Route: 048
     Dates: start: 20160806, end: 20160806

REACTIONS (20)
  - Pain in extremity [Recovered/Resolved]
  - Nervous system disorder [Not Recovered/Not Resolved]
  - Incorrect dose administered [None]
  - Headache [Recovered/Resolved]
  - Dyspnoea [Recovered/Resolved]
  - Visual impairment [Recovered/Resolved]
  - Pyrexia [Recovered/Resolved]
  - Ocular hyperaemia [Recovered/Resolved]
  - Cyanosis [Recovered/Resolved]
  - Seizure [Recovered/Resolved]
  - Paraesthesia [Recovered/Resolved]
  - Suspected counterfeit product [None]
  - Inappropriate schedule of drug administration [None]
  - Tinnitus [Not Recovered/Not Resolved]
  - Headache [Unknown]
  - Cyanosis [None]
  - Tremor [Recovered/Resolved]
  - Panic attack [Recovered/Resolved]
  - Dizziness [Recovered/Resolved]
  - Syncope [Recovered/Resolved]

NARRATIVE: CASE EVENT DATE: 201607
